FAERS Safety Report 9777677 (Version 1)
Quarter: 2013Q4

REPORT INFORMATION
  Report Type: Spontaneous
  Country: US (occurrence: US)
  Receive Date: 20131223
  Receipt Date: 20131223
  Transmission Date: 20140711
  Serious: Yes (Hospitalization, Other)
  Sender: FDA-Public Use
  Company Number: US-AMGEN-USASP2013088923

PATIENT
  Age: 63 Year
  Sex: Male

DRUGS (1)
  1. ENBREL [Suspect]
     Indication: PSORIASIS
     Dosage: 50 MG, EVERY 4 DAYS
     Route: 065
     Dates: start: 2004

REACTIONS (4)
  - Hepatic cirrhosis [Not Recovered/Not Resolved]
  - Cholelithiasis [Unknown]
  - Gastrointestinal infection [Recovered/Resolved]
  - Cholecystitis infective [Recovered/Resolved]
